FAERS Safety Report 9074804 (Version 1)
Quarter: 2013Q1

REPORT INFORMATION
  Report Type: Spontaneous
  Country: US (occurrence: US)
  Receive Date: 20130129
  Receipt Date: 20130129
  Transmission Date: 20140127
  Serious: No
  Sender: FDA-Public Use
  Company Number: US-ABBOTT-12P-163-0911606-00

PATIENT
  Age: 68 Year
  Sex: 0

DRUGS (2)
  1. LUPRON DEPOT [Suspect]
     Indication: PROSTATE CANCER
     Dates: start: 2006
  2. VASOTEC [Concomitant]
     Indication: HYPERTENSION

REACTIONS (2)
  - Prostatic specific antigen increased [Recovered/Resolved]
  - Inappropriate schedule of drug administration [Recovered/Resolved]
